FAERS Safety Report 7744093-2 (Version None)
Quarter: 2011Q3

REPORT INFORMATION
  Report Type: 
  Country: None (occurrence: None)
  Receive Date: 20110831
  Receipt Date: 20110826
  Transmission Date: 20111222
  Serious: Yes (Hospitalization)
  Sender: FDA-Public Use
  Company Number: 2011SP040494

PATIENT
  Age: 45 Year
  Sex: Female
  Weight: 90 kg

DRUGS (4)
  1. LYRICA [Concomitant]
  2. TEMOZOLOMIDE [Suspect]
     Indication: GLIOBLASTOMA MULTIFORME
     Dosage: 160 MG;PO
     Route: 048
     Dates: start: 20100125, end: 20100509
  3. GABAPENTIN [Concomitant]
  4. CINALONG [Concomitant]

REACTIONS (1)
  - HEPATITIS B [None]
